FAERS Safety Report 5775373-8 (Version None)
Quarter: 2008Q2

REPORT INFORMATION
  Report Type: 
  Country: None (occurrence: None)
  Receive Date: 20080617
  Receipt Date: 20080606
  Transmission Date: 20081010
  Serious: Yes (Life-Threatening)
  Sender: FDA-Public Use
  Company Number: JP-MERCK-0806USA00107

PATIENT
  Age: 80 Year
  Sex: Female
  Weight: 72 kg

DRUGS (11)
  1. FOSAMAX [Suspect]
     Indication: OSTEOPOROSIS
     Route: 048
     Dates: start: 20080308
  2. MUCOSAL [Concomitant]
     Indication: ASTHMA
     Route: 048
     Dates: start: 20030120, end: 20080509
  3. GASMOTIN [Concomitant]
     Indication: GASTRITIS
     Route: 048
     Dates: start: 20030120, end: 20080509
  4. RUEFRIEN [Concomitant]
     Indication: GASTRITIS
     Route: 048
     Dates: start: 20030120, end: 20080509
  5. NORVASC [Concomitant]
     Indication: HYPERTENSION
     Route: 048
     Dates: start: 20030120, end: 20080509
  6. MEDICON [Concomitant]
     Indication: ASTHMA
     Route: 048
     Dates: start: 20030120, end: 20080509
  7. ASPARA CA [Concomitant]
     Indication: OSTEOPOROSIS
     Route: 048
     Dates: start: 20030120, end: 20080509
  8. BROCIN CODEINE [Concomitant]
     Indication: ASTHMA
     Route: 048
     Dates: start: 20030929, end: 20080509
  9. SINGULAIR [Concomitant]
     Indication: ASTHMA
     Route: 048
     Dates: start: 20060116, end: 20080509
  10. MICARDIS [Concomitant]
     Indication: HYPERTENSION
     Route: 048
     Dates: start: 20060217, end: 20080509
  11. BONALON [Concomitant]
     Route: 048
     Dates: end: 20080307

REACTIONS (1)
  - LOSS OF CONSCIOUSNESS [None]
